FAERS Safety Report 17824595 (Version 1)
Quarter: 2020Q2

REPORT INFORMATION
  Report Type: Spontaneous
  Country: US (occurrence: US)
  Receive Date: 20200526
  Receipt Date: 20200526
  Transmission Date: 20200714
  Serious: Yes (Other)
  Sender: FDA-Public Use
  Company Number: US-TEVA-2020-US-1239324

PATIENT
  Age: 37 Year
  Sex: Male

DRUGS (1)
  1. TRIAMCINOLONE ACETONIDE. [Suspect]
     Active Substance: TRIAMCINOLONE ACETONIDE
     Indication: NASAL SEPTAL OPERATION
     Dosage: ADMINISTERED INTO THE SEPTAL MUCOSA
     Route: 065

REACTIONS (7)
  - Visual field defect [Not Recovered/Not Resolved]
  - Retinal artery occlusion [Recovering/Resolving]
  - Chorioretinal disorder [Recovering/Resolving]
  - Embolism [Recovering/Resolving]
  - Maculopathy [Recovering/Resolving]
  - Blindness [Not Recovered/Not Resolved]
  - Retinal degeneration [Recovering/Resolving]
